FAERS Safety Report 25278898 (Version 1)
Quarter: 2025Q2

REPORT INFORMATION
  Report Type: Spontaneous
  Country: DK (occurrence: DK)
  Receive Date: 20250507
  Receipt Date: 20250507
  Transmission Date: 20250717
  Serious: Yes (Other)
  Sender: PFIZER
  Company Number: None

PATIENT
  Age: 47 Year
  Sex: Male

DRUGS (13)
  1. PANTOPRAZOLE [Suspect]
     Active Substance: PANTOPRAZOLE
     Indication: Antacid therapy
     Route: 065
     Dates: start: 2012
  2. DIMETHYLAMINODIPHENYLBUTENE HYDROCHLORIDE\KETOBEMIDONE HYDROCHLORIDE [Suspect]
     Active Substance: DIMETHYLAMINODIPHENYLBUTENE HYDROCHLORIDE\KETOBEMIDONE HYDROCHLORIDE
     Indication: Epilepsy
     Route: 065
     Dates: start: 2012
  3. QUETIAPINE FUMARATE [Suspect]
     Active Substance: QUETIAPINE FUMARATE
     Indication: Antipsychotic therapy
     Route: 065
     Dates: start: 2012
  4. MORPHINE HYDROCHLORIDE [Suspect]
     Active Substance: MORPHINE HYDROCHLORIDE
     Indication: Pain
     Route: 065
     Dates: start: 2012
  5. IBUPROFEN [Suspect]
     Active Substance: IBUPROFEN
     Route: 065
     Dates: start: 2012
  6. ATORVASTATIN CALCIUM [Suspect]
     Active Substance: ATORVASTATIN CALCIUM
     Indication: Blood cholesterol increased
     Route: 065
     Dates: start: 2012
  7. CYMBALTA [Suspect]
     Active Substance: DULOXETINE HYDROCHLORIDE
     Indication: Depression
     Route: 065
     Dates: start: 2012
  8. SERTRALINE HYDROCHLORIDE [Suspect]
     Active Substance: SERTRALINE HYDROCHLORIDE
     Indication: Depression
     Route: 065
     Dates: start: 2012
  9. GABAPENTIN [Suspect]
     Active Substance: GABAPENTIN
     Indication: Epilepsy
     Route: 065
     Dates: start: 2012
  10. DULOXETINE [Suspect]
     Active Substance: DULOXETINE
     Indication: Depression
     Route: 065
     Dates: start: 2012
  11. CITALOPRAM HYDROBROMIDE [Suspect]
     Active Substance: CITALOPRAM HYDROBROMIDE
     Indication: Depression
     Route: 065
  12. ANAFRANIL [Suspect]
     Active Substance: CLOMIPRAMINE HYDROCHLORIDE
     Indication: Depression
     Route: 065
     Dates: start: 2012
  13. MIRTAZAPINE [Suspect]
     Active Substance: MIRTAZAPINE
     Indication: Depression
     Route: 065
     Dates: start: 2012

REACTIONS (12)
  - Gastric ulcer [Unknown]
  - Haematochezia [Unknown]
  - Pain [Unknown]
  - Gastrointestinal disorder [Unknown]
  - Dyschezia [Unknown]
  - Constipation [Unknown]
  - Intestinal polyp [Unknown]
  - Discomfort [Unknown]
  - Haemorrhoids [Unknown]
  - Decreased appetite [Unknown]
  - Quality of life decreased [Unknown]
  - Weight decreased [Unknown]
